FAERS Safety Report 5284473-0 (Version None)
Quarter: 2007Q1

REPORT INFORMATION
  Report Type: 
  Country: None (occurrence: None)
  Receive Date: 20061229
  Receipt Date: 20061010
  Transmission Date: 20070707
  Serious: Yes (Other)
  Sender: FDA-Public Use
  Company Number: 06-016

PATIENT
  Sex: Male

DRUGS (1)
  1. TERAZOSIN HYDROCHLORIDE [Suspect]
     Indication: URINARY TRACT DISORDER
     Dosage: ORAL
     Route: 048

REACTIONS (2)
  - DRUG INEFFECTIVE [None]
  - URINARY TRACT DISORDER [None]
